FAERS Safety Report 17347880 (Version 1)
Quarter: 2020Q1

REPORT INFORMATION
  Report Type: Spontaneous
  Country: US (occurrence: US)
  Receive Date: 20200114
  Receipt Date: 20200114
  Transmission Date: 20200409
  Serious: Yes (Disabling)
  Sender: FDA-Public Use
  Company Number: None

PATIENT
  Age: 72 Year
  Sex: Female
  Weight: 117.93 kg

DRUGS (9)
  1. TUMS [Concomitant]
     Active Substance: CALCIUM CARBONATE
  2. SPIRONOLACTONE. [Concomitant]
     Active Substance: SPIRONOLACTONE
  3. HYDROCHLOROTHIAZIDE. [Concomitant]
     Active Substance: HYDROCHLOROTHIAZIDE
  4. DULCOLAX NOS [Concomitant]
     Active Substance: BISACODYL OR DOCUSATE SODIUM
  5. MULTIVITAMIN [Concomitant]
     Active Substance: VITAMINS
  6. MELOXICAM 15MG TABLET [Suspect]
     Active Substance: MELOXICAM
     Indication: INJECTION SITE JOINT INFLAMMATION
     Dosage: ?          QUANTITY:30 DF DOSAGE FORM;?
     Route: 048
     Dates: start: 20180717, end: 20180901
  7. NITROSTAT [Concomitant]
     Active Substance: NITROGLYCERIN
  8. ABILIFY [Concomitant]
     Active Substance: ARIPIPRAZOLE
  9. ASPIRIN. [Concomitant]
     Active Substance: ASPIRIN

REACTIONS (3)
  - Life expectancy shortened [None]
  - Cardiomyopathy [None]
  - Coronary artery occlusion [None]

NARRATIVE: CASE EVENT DATE: 20180717
